FAERS Safety Report 6357107-1 (Version None)
Quarter: 2009Q3

REPORT INFORMATION
  Report Type: 
  Country: None (occurrence: None)
  Receive Date: 20090910
  Receipt Date: 20090825
  Transmission Date: 20100115
  Serious: Yes (Death, Hospitalization)
  Sender: FDA-Public Use
  Company Number: 2009AL004452

PATIENT
  Age: 29 Year
  Sex: Female
  Weight: 125 kg

DRUGS (11)
  1. DIGOXIN [Suspect]
     Dosage: 0.125MG, DAILY, PO
     Route: 048
  2. LASIX [Concomitant]
  3. K-DUR [Concomitant]
  4. PRINIVIL [Concomitant]
  5. SPIRONOLACTONE [Concomitant]
  6. TEQUIN [Concomitant]
  7. ROBITUSSIN [Concomitant]
  8. COREG [Concomitant]
  9. ZAROXOLYN [Concomitant]
  10. COUMADIN [Concomitant]
  11. LIPITOR [Concomitant]

REACTIONS (26)
  - ABDOMINAL PAIN UPPER [None]
  - BACK PAIN [None]
  - BLOOD CHOLESTEROL INCREASED [None]
  - CARDIAC FAILURE CONGESTIVE [None]
  - CARDIOMEGALY [None]
  - CARDIOMYOPATHY [None]
  - CHEST DISCOMFORT [None]
  - CONDITION AGGRAVATED [None]
  - ECONOMIC PROBLEM [None]
  - FLANK PAIN [None]
  - HAIR GROWTH ABNORMAL [None]
  - INFERTILITY [None]
  - INFLUENZA LIKE ILLNESS [None]
  - INJURY [None]
  - MENSTRUATION IRREGULAR [None]
  - NAUSEA [None]
  - PNEUMONIA [None]
  - POLYCYSTIC OVARIES [None]
  - POSTPARTUM DISORDER [None]
  - PRESYNCOPE [None]
  - RENAL CANCER [None]
  - SLEEP APNOEA SYNDROME [None]
  - SURGERY [None]
  - TUBERCULIN TEST POSITIVE [None]
  - URINARY INCONTINENCE [None]
  - VOMITING [None]
